FAERS Safety Report 5922518-2 (Version None)
Quarter: 2008Q3

REPORT INFORMATION
  Report Type: 
  Country: None (occurrence: None)
  Receive Date: 20080909
  Receipt Date: 20070918
  Transmission Date: 20090109
  Serious: Yes (Hospitalization)
  Sender: FDA-Public Use
  Company Number: 163-20785-05010205

PATIENT
  Age: 34 Year
  Sex: Male

DRUGS (7)
  1. THALOMID [Suspect]
     Indication: GLIOBLASTOMA MULTIFORME
     Dosage: 400 MG, DAILY, ORAL : 100 MG, QHS, ON AND OFF, ORAL
     Route: 048
     Dates: start: 20030501, end: 20061201
  2. THALOMID [Suspect]
     Indication: GLIOBLASTOMA MULTIFORME
     Dosage: 400 MG, DAILY, ORAL : 100 MG, QHS, ON AND OFF, ORAL
     Route: 048
     Dates: start: 20061205, end: 20070301
  3. THALOMID [Suspect]
  4. WARFARIN SODIUM [Concomitant]
  5. DILANTIN [Concomitant]
  6. DEPAKOTE [Concomitant]
  7. TEGRETOL [Concomitant]

REACTIONS (2)
  - DISEASE PROGRESSION [None]
  - NEUROPATHY PERIPHERAL [None]
